FAERS Safety Report 5790287-5 (Version None)
Quarter: 2008Q2

REPORT INFORMATION
  Report Type: 
  Country: None (occurrence: None)
  Receive Date: 20080626
  Receipt Date: 20080619
  Transmission Date: 20081010
  Serious: Yes (Death, Life-Threatening, Hospitalization, Other)
  Sender: FDA-Public Use
  Company Number: DE-BRISTOL-MYERS SQUIBB COMPANY-14191449

PATIENT
  Age: 49 Year
  Sex: Male

DRUGS (12)
  1. CETUXIMAB [Suspect]
     Indication: NON-SMALL CELL LUNG CANCER
     Dosage: 5MG/ML.FIRST INFUSION ON 23JAN2008.2ND INFUSION ON 16APR2008,RECENT INFUSION ON 23APR08
     Route: 042
     Dates: start: 20080123, end: 20080423
  2. CARBOPLATIN [Suspect]
     Indication: NON-SMALL CELL LUNG CANCER
     Dosage: INITIAL INFUSION ON 23JAN08 AND RECENT INFUISON ON 16APR08
     Route: 042
     Dates: start: 20080123, end: 20080416
  3. DOCETAXEL [Suspect]
     Indication: NON-SMALL CELL LUNG CANCER
     Dosage: INITIAL INFUSION ON 23JAN08 AND RECENT INFUISON ON 23APR08
     Route: 042
     Dates: start: 20080123, end: 20080423
  4. DICODID [Concomitant]
     Indication: COUGH
  5. VOLTAREN [Concomitant]
     Indication: PAIN
  6. PANTOPRAZOLE SODIUM [Concomitant]
     Indication: GASTRITIS PROPHYLAXIS
  7. CLEXANE [Concomitant]
     Indication: THROMBOSIS
  8. INDOMETHACIN [Concomitant]
     Indication: OSTEITIS
  9. TRAMAL LONG [Concomitant]
     Indication: PAIN
  10. FORTECORTIN [Concomitant]
     Indication: PROPHYLAXIS OF NAUSEA AND VOMITING
  11. FENISTIL [Concomitant]
     Indication: ALLERGY PROPHYLAXIS
  12. METAMIZOL [Concomitant]
     Indication: PAIN

REACTIONS (2)
  - PANCYTOPENIA [None]
  - STAPHYLOCOCCAL SEPSIS [None]
